FAERS Safety Report 10205114 (Version 1)
Quarter: 2014Q2

REPORT INFORMATION
  Report Type: Report from Study
  Country: US (occurrence: US)
  Receive Date: 20140529
  Receipt Date: 20140529
  Transmission Date: 20141212
  Serious: Yes (Hospitalization)
  Sender: FDA-Public Use
  Company Number: US-ASTRAZENECA-2014SE35334

PATIENT
  Age: 65 Year
  Sex: Female
  Weight: 94.3 kg

DRUGS (5)
  1. FASLODEX [Suspect]
     Indication: BREAST CANCER METASTATIC
     Route: 030
     Dates: start: 2011
  2. SENEKOT S [Concomitant]
     Indication: ABDOMINAL DISCOMFORT
     Dosage: 50MG, 8.6MG 2 PILLS EVERY THREE DAYS
  3. SENEKOT S [Concomitant]
     Indication: FAECES HARD
     Dosage: 50MG, 8.6MG 2 PILLS EVERY THREE DAYS
  4. SIMVASTATIN [Concomitant]
     Indication: BLOOD CHOLESTEROL
     Dates: start: 2011
  5. WARFARIN [Concomitant]
     Indication: THROMBOSIS
     Dosage: 5 TO 7.5MG DAILY

REACTIONS (5)
  - Intestinal obstruction [Recovered/Resolved]
  - Eosinophil count abnormal [Unknown]
  - Blood cholesterol abnormal [Unknown]
  - Urticaria [Unknown]
  - Rash pruritic [Unknown]
